FAERS Safety Report 25493526 (Version 1)
Quarter: 2025Q2

REPORT INFORMATION
  Report Type: Spontaneous
  Country: US (occurrence: US)
  Receive Date: 20250630
  Receipt Date: 20250630
  Transmission Date: 20250716
  Serious: Yes (Other)
  Sender: OCTAPHARMA
  Company Number: US-OCTA-2025000535

PATIENT
  Sex: Female

DRUGS (1)
  1. HUMAN IMMUNOGLOBULIN G [Suspect]
     Active Substance: HUMAN IMMUNOGLOBULIN G
     Indication: Gestational alloimmune liver disease
     Dosage: 1G/KG
     Route: 042

REACTIONS (2)
  - Drug-induced liver injury [Unknown]
  - Maternal exposure during pregnancy [Unknown]
